FAERS Safety Report 8311058-1 (Version None)
Quarter: 2012Q2

REPORT INFORMATION
  Report Type: 
  Country: None (occurrence: None)
  Receive Date: 20120425
  Receipt Date: 20120417
  Transmission Date: 20120825
  Serious: No
  Sender: FDA-Public Use
  Company Number: US-BIOGENIDEC-2012BI013791

PATIENT
  Age: 38 Year
  Sex: Female

DRUGS (2)
  1. TYSABRI [Suspect]
     Indication: MULTIPLE SCLEROSIS
     Route: 042
     Dates: start: 20090513
  2. AMPYRA [Concomitant]
     Indication: BALANCE DISORDER
     Dates: start: 20010101

REACTIONS (3)
  - DENTAL CARIES [None]
  - HYPERTHYROIDISM [None]
  - TOOTH INFECTION [None]
